FAERS Safety Report 9423813 (Version 1)
Quarter: 2013Q3

REPORT INFORMATION
  Report Type: Spontaneous
  Country: US (occurrence: US)
  Receive Date: 20130729
  Receipt Date: 20130729
  Transmission Date: 20140515
  Serious: Yes (Hospitalization, Other)
  Sender: FDA-Public Use
  Company Number: US-TEVA-421098USA

PATIENT
  Age: 20 Year
  Sex: Male
  Weight: 90 kg

DRUGS (6)
  1. HYDROCORTISONE [Suspect]
     Indication: HYPOTHALAMO-PITUITARY DISORDER
     Route: 065
  2. DEXAMETHASONE [Suspect]
     Indication: BRAIN OEDEMA
     Dosage: 8 MG/DAY; SLOWED TAPERED TO 3MG DAILY
     Route: 065
  3. DEXAMETHASONE [Suspect]
     Indication: BRAIN OEDEMA
     Dosage: 3MG DAILY
     Route: 065
  4. LEVOTHYROXINE SODIUM [Concomitant]
     Indication: HYPOTHALAMO-PITUITARY DISORDER
     Route: 065
  5. TESTOSTERONE [Concomitant]
     Indication: HYPOTHALAMO-PITUITARY DISORDER
     Dosage: DOSES ADJUSTED REGULARLY TO MAINTAIN SERUM LEVELS WITHIN NORMAL RANGES
     Route: 062
  6. TEMOZOLOMIDE [Concomitant]
     Indication: ANAPLASTIC ASTROCYTOMA
     Route: 065

REACTIONS (3)
  - Diabetes mellitus [Recovered/Resolved]
  - Oligodipsia [Recovered/Resolved]
  - Diabetes insipidus [Recovered/Resolved]
